FAERS Safety Report 5597915-8 (Version None)
Quarter: 2007Q4

REPORT INFORMATION
  Report Type: 
  Country: None (occurrence: None)
  Receive Date: 20071221
  Receipt Date: 20070131
  Transmission Date: 20080405
  Serious: No
  Sender: FDA-Public Use
  Company Number: 07H-163-0311891-00

PATIENT
  Age: 39 Year
  Sex: Female

DRUGS (1)
  1. MORPHINE SULFATE INJ [Suspect]
     Indication: ANALGESIA
     Dosage: INTRAVENOUS
     Route: 042
     Dates: start: 20070125, end: 20070125

REACTIONS (2)
  - RESPIRATORY RATE DECREASED [None]
  - UNRESPONSIVE TO STIMULI [None]
